FAERS Safety Report 16255344 (Version 4)
Quarter: 2019Q4

REPORT INFORMATION
  Report Type: Spontaneous
  Country: JP (occurrence: JP)
  Receive Date: 20190430
  Receipt Date: 20191205
  Transmission Date: 20200122
  Serious: Yes (Hospitalization)
  Sender: FDA-Public Use
  Company Number: JP-ASTRAZENECA-2019SE64502

PATIENT
  Age: 27476 Day
  Sex: Male
  Weight: 61 kg

DRUGS (5)
  1. OLMETEC [Concomitant]
     Active Substance: OLMESARTAN MEDOXOMIL
     Indication: HYPERTENSION
     Route: 048
  2. FEBURIC [Concomitant]
     Active Substance: FEBUXOSTAT
     Indication: HYPERURICAEMIA
     Route: 048
  3. GOSHAJINKIGAN [Concomitant]
     Active Substance: HERBALS
     Indication: HYPOAESTHESIA
     Route: 048
  4. TAGRISSO [Suspect]
     Active Substance: OSIMERTINIB
     Indication: NON-SMALL CELL LUNG CANCER
     Route: 048
     Dates: start: 20190411, end: 20190417
  5. BELSOMRA [Concomitant]
     Active Substance: SUVOREXANT
     Dosage: AS REQUIRED
     Route: 048

REACTIONS (3)
  - Pyrexia [Recovered/Resolved]
  - Erythema multiforme [Recovered/Resolved]
  - Conjunctivitis [Recovering/Resolving]

NARRATIVE: CASE EVENT DATE: 20190417
